FAERS Safety Report 14243359 (Version 2)
Quarter: 2018Q1

REPORT INFORMATION
  Report Type: Report from Study
  Country: BR (occurrence: BR)
  Receive Date: 20171201
  Receipt Date: 20180102
  Transmission Date: 20180508
  Serious: Yes (Other)
  Sender: FDA-Public Use
  Company Number: BR-ROCHE-2031720

PATIENT
  Age: 73 Year
  Sex: Male
  Weight: 64.3 kg

DRUGS (18)
  1. GABAPENTIN. [Concomitant]
     Active Substance: GABAPENTIN
     Indication: PERIPHERAL SENSORY NEUROPATHY
     Route: 065
     Dates: start: 20170823, end: 20171020
  2. DIPYRONE [Concomitant]
     Active Substance: DIPYRONE
     Indication: PAIN IN EXTREMITY
     Route: 065
     Dates: start: 20171021
  3. MINERAL OIL. [Concomitant]
     Active Substance: MINERAL OIL
     Indication: CONSTIPATION
     Route: 065
     Dates: start: 20171119, end: 20171124
  4. ATEZOLIZUMAB. [Suspect]
     Active Substance: ATEZOLIZUMAB
     Indication: NON-SMALL CELL LUNG CANCER STAGE IV
     Route: 042
     Dates: start: 20161007
  5. PACLITAXEL. [Suspect]
     Active Substance: PACLITAXEL
     Indication: NON-SMALL CELL LUNG CANCER STAGE IV
     Route: 042
     Dates: start: 20161007
  6. RIVOTRIL [Concomitant]
     Active Substance: CLONAZEPAM
     Indication: DEPRESSION
     Route: 065
     Dates: start: 2010
  7. LOSARTAN. [Concomitant]
     Active Substance: LOSARTAN
     Indication: HYPERTENSION
     Route: 065
     Dates: start: 20170719
  8. CARBOPLATIN. [Suspect]
     Active Substance: CARBOPLATIN
     Indication: NON-SMALL CELL LUNG CANCER STAGE IV
     Dosage: ADMINISTERED AT AREA UNDER THE CONCENTRATION-TIME CURVE (AUC) 6 MILLIGRAMS PER MILLILITER PER MINUTE
     Route: 042
     Dates: start: 20161007
  9. CILOSTAZOL. [Concomitant]
     Active Substance: CILOSTAZOL
     Indication: ARTERIAL OCCLUSIVE DISEASE
     Route: 065
     Dates: start: 20170915
  10. GABAPENTIN. [Concomitant]
     Active Substance: GABAPENTIN
     Route: 065
     Dates: start: 20171021
  11. DIPYRONE [Concomitant]
     Active Substance: DIPYRONE
     Route: 065
     Dates: start: 20171119, end: 20171124
  12. BROMOPRIDE [Concomitant]
     Active Substance: BROMOPRIDE
     Indication: NAUSEA
     Route: 065
     Dates: start: 20171119, end: 20171124
  13. DIPYRONE [Concomitant]
     Active Substance: DIPYRONE
     Indication: PAIN IN EXTREMITY
     Route: 065
     Dates: start: 20171002, end: 20171020
  14. ALPROSTADIL. [Concomitant]
     Active Substance: ALPROSTADIL
     Indication: ARTERIAL OCCLUSIVE DISEASE
     Route: 065
     Dates: start: 20171119, end: 20171124
  15. PARACETAMOL [Concomitant]
     Active Substance: ACETAMINOPHEN
     Indication: CHEST PAIN
     Route: 065
     Dates: start: 20161130
  16. PARACETAMOL [Concomitant]
     Active Substance: ACETAMINOPHEN
     Indication: PAIN IN EXTREMITY
     Route: 065
     Dates: start: 20171021
  17. SIMVASTATIN. [Concomitant]
     Active Substance: SIMVASTATIN
     Indication: ARTERIAL OCCLUSIVE DISEASE
     Route: 065
     Dates: start: 20171019
  18. PENTOXIFYLLINE. [Concomitant]
     Active Substance: PENTOXIFYLLINE
     Indication: ARTERIAL OCCLUSIVE DISEASE
     Route: 065
     Dates: start: 20171119, end: 20171124

REACTIONS (1)
  - Pain in extremity [Recovering/Resolving]

NARRATIVE: CASE EVENT DATE: 20171119
